FAERS Safety Report 18906221 (Version 1)
Quarter: 2021Q1

REPORT INFORMATION
  Report Type: Spontaneous
  Country: IL (occurrence: IL)
  Receive Date: 20210217
  Receipt Date: 20210217
  Transmission Date: 20210420
  Serious: Yes (Other)
  Sender: FDA-Public Use
  Company Number: IL-US-PROVELL PHARMACEUTICALS LLC-9218575

PATIENT
  Age: 59 Year
  Sex: Female

DRUGS (1)
  1. EUTHYROX [Suspect]
     Active Substance: LEVOTHYROXINE SODIUM
     Indication: PRODUCT USED FOR UNKNOWN INDICATION
     Dates: start: 20200904

REACTIONS (3)
  - Palpitations [Unknown]
  - Illness [Unknown]
  - Headache [Unknown]
